FAERS Safety Report 8229805-6 (Version None)
Quarter: 2012Q1

REPORT INFORMATION
  Report Type: 
  Country: None (occurrence: None)
  Receive Date: 20120322
  Receipt Date: 20120309
  Transmission Date: 20120608
  Serious: Yes (Other)
  Sender: FDA-Public Use
  Company Number: JP-MYLANLABS-2012S1005493

PATIENT
  Age: 72 Year
  Sex: Female

DRUGS (2)
  1. CARBOPLATIN [Suspect]
     Indication: OVARIAN CANCER RECURRENT
     Route: 042
     Dates: start: 20120307, end: 20120307
  2. GEMZAR [Suspect]
     Indication: OVARIAN CANCER RECURRENT
     Dosage: MG/BODY DOSE UNIT:1000 UNKNOWN
     Route: 042
     Dates: start: 20120307, end: 20120307

REACTIONS (4)
  - HYPERSENSITIVITY [None]
  - FEELING ABNORMAL [None]
  - HEADACHE [None]
  - DEPRESSED LEVEL OF CONSCIOUSNESS [None]
